FAERS Safety Report 15168524 (Version 2)
Quarter: 2019Q1

REPORT INFORMATION
  Report Type: Spontaneous
  Country: US (occurrence: US)
  Receive Date: 20180719
  Receipt Date: 20190228
  Transmission Date: 20190417
  Serious: No
  Sender: FDA-Public Use
  Company Number: PHEH2018US029510

PATIENT
  Age: 17 Year
  Sex: Female

DRUGS (1)
  1. VOTRIENT [Suspect]
     Active Substance: PAZOPANIB HYDROCHLORIDE
     Indication: FIBROMATOSIS
     Dosage: 800 MG, QD
     Route: 048
     Dates: start: 20180215

REACTIONS (7)
  - Skin depigmentation [Unknown]
  - Hair colour changes [Unknown]
  - Food allergy [Unknown]
  - Diarrhoea [Unknown]
  - Weight decreased [Unknown]
  - Gastric disorder [Unknown]
  - Abdominal pain upper [Unknown]

NARRATIVE: CASE EVENT DATE: 20180712
